FAERS Safety Report 6524597-0 (Version None)
Quarter: 2010Q1

REPORT INFORMATION
  Report Type: 
  Country: None (occurrence: None)
  Receive Date: 20100104
  Receipt Date: 20091222
  Transmission Date: 20100710
  Serious: Yes (Other)
  Sender: FDA-Public Use
  Company Number: PHHY2009KR57521

PATIENT
  Sex: Female

DRUGS (1)
  1. ACLASTA [Suspect]
     Indication: METASTASES TO BONE
     Dosage: 5 MG, UNK
     Route: 042
     Dates: start: 20090107

REACTIONS (2)
  - FALL [None]
  - RIB FRACTURE [None]
